FAERS Safety Report 9958559 (Version 6)
Quarter: 2014Q2

REPORT INFORMATION
  Report Type: Spontaneous
  Country: FR (occurrence: FR)
  Receive Date: 20140305
  Receipt Date: 20140513
  Transmission Date: 20141212
  Serious: Yes (Hospitalization, Other)
  Sender: FDA-Public Use
  Company Number: FR-AMGEN-FRASP2014014660

PATIENT
  Age: 71 Year
  Sex: Male
  Weight: 67 kg

DRUGS (6)
  1. XGEVA [Suspect]
     Indication: METASTASES TO BONE
     Dosage: 120 MG, Q4WK
     Route: 058
     Dates: start: 201304, end: 201401
  2. AVASTIN                            /01555201/ [Suspect]
     Indication: COLORECTAL CANCER METASTATIC
     Dosage: UNK UNK, Q2WK
     Route: 042
     Dates: start: 20130523, end: 20140115
  3. OXALIPLATIN [Concomitant]
     Indication: COLORECTAL CANCER METASTATIC
     Dosage: UNK UNK, Q2WK
     Route: 042
     Dates: start: 20131104, end: 20140115
  4. 5-FU                               /00098801/ [Concomitant]
     Indication: COLORECTAL CANCER METASTATIC
     Dosage: UNK UNK, Q2WK
     Route: 042
     Dates: start: 20130525, end: 20140115
  5. DUROGESIC [Concomitant]
     Indication: PAIN
     Dosage: 75 MUG, Q72H
     Route: 062
     Dates: start: 201311
  6. INNOHEP [Concomitant]
     Indication: PULMONARY EMBOLISM
     Dosage: 3.5 ML, QD
     Dates: start: 201310

REACTIONS (7)
  - Mucosal necrosis [Not Recovered/Not Resolved]
  - Osteonecrosis of jaw [Not Recovered/Not Resolved]
  - Incisional hernia [Unknown]
  - Sepsis [Unknown]
  - Pulmonary embolism [Unknown]
  - Bone density decreased [Unknown]
  - Dental caries [Unknown]
